FAERS Safety Report 23111178 (Version 1)
Quarter: 2023Q4

REPORT INFORMATION
  Report Type: Report from Study
  Country: BR (occurrence: BR)
  Receive Date: 20231026
  Receipt Date: 20231026
  Transmission Date: 20240110
  Serious: Yes (Death, Hospitalization)
  Sender: FDA-Public Use
  Company Number: BR-JNJFOC-20230839643

PATIENT
  Age: 44 Year
  Sex: Female

DRUGS (1)
  1. SIMPONI [Suspect]
     Active Substance: GOLIMUMAB
     Indication: Rheumatoid arthritis
     Route: 058

REACTIONS (9)
  - Cardiac arrest [Fatal]
  - Pneumonia [Unknown]
  - Haemoglobin decreased [Unknown]
  - Hospitalisation [Unknown]
  - Blood glucose decreased [Unknown]
  - Fall [Unknown]
  - Peripheral swelling [Unknown]
  - Swelling face [Unknown]
  - Pain [Unknown]

NARRATIVE: CASE EVENT DATE: 20230801
